FAERS Safety Report 8033589-4 (Version None)
Quarter: 2012Q1

REPORT INFORMATION
  Report Type: 
  Country: None (occurrence: None)
  Receive Date: 20120110
  Receipt Date: 20120109
  Transmission Date: 20120608
  Serious: Yes (Other)
  Sender: FDA-Public Use
  Company Number: US-JNJFOC-20111109061

PATIENT
  Sex: Female
  Weight: 68.04 kg

DRUGS (6)
  1. SYNTHROID [Concomitant]
     Indication: THYROID DISORDER
     Route: 048
  2. LIPITOR [Concomitant]
     Indication: BLOOD CHOLESTEROL
     Route: 048
  3. TOPAMAX [Suspect]
     Indication: CONVULSION
     Dosage: 200MG AM AND BEDTIME, 100MG NOON
     Route: 048
     Dates: start: 20040101
  4. ATIVAN [Concomitant]
     Indication: ANXIETY
     Route: 048
  5. DEPAKOTE [Concomitant]
     Indication: CONVULSION
     Dosage: 500MG 2 TABLETS EVERYDAY, 500MG DAILY AT NOON AND BEDTIME
     Route: 048
  6. REMERON [Concomitant]
     Indication: DEPRESSION
     Route: 048

REACTIONS (2)
  - GLAUCOMA [None]
  - CATARACT [None]
